FAERS Safety Report 24282339 (Version 2)
Quarter: 2024Q4

REPORT INFORMATION
  Report Type: Report from Study
  Country: CA (occurrence: CA)
  Receive Date: 20240904
  Receipt Date: 20241001
  Transmission Date: 20250115
  Serious: Yes (Other)
  Sender: GILEAD
  Company Number: CA-GLAXOSMITHKLINE-CA2024AMR107601

PATIENT
  Sex: Female

DRUGS (1)
  1. AMBRISENTAN [Suspect]
     Active Substance: AMBRISENTAN
     Indication: Pulmonary hypertension
     Dosage: 10 MG, QD
     Route: 048
     Dates: start: 20240816

REACTIONS (4)
  - Hip fracture [Recovering/Resolving]
  - Peripheral swelling [Unknown]
  - Swelling [Unknown]
  - Fluid retention [Unknown]
